FAERS Safety Report 9428215 (Version 1)
Quarter: 2013Q3

REPORT INFORMATION
  Report Type: Spontaneous
  Country: US (occurrence: US)
  Receive Date: 20130730
  Receipt Date: 20130730
  Transmission Date: 20140515
  Serious: No
  Sender: FDA-Public Use
  Company Number: US-GLAXOSMITHKLINE-A0984948A

PATIENT
  Age: 47 Year
  Sex: Female
  Weight: 77.3 kg

DRUGS (9)
  1. RANITIDINE HYDROCHLORIDE [Suspect]
     Indication: PRURITUS
  2. GLIMEPIRIDE [Concomitant]
  3. AVAPRO [Concomitant]
  4. SIMVASTATIN [Concomitant]
  5. LORATADINE [Concomitant]
  6. LEVOCETIRIZINE [Concomitant]
  7. XYZAL [Concomitant]
  8. UNKNOWN [Concomitant]
  9. ATARAX [Concomitant]

REACTIONS (1)
  - Drug ineffective [Unknown]
